FAERS Safety Report 17272989 (Version 4)
Quarter: 2020Q1

REPORT INFORMATION
  Report Type: Spontaneous
  Country: US (occurrence: US)
  Receive Date: 20200115
  Receipt Date: 20200320
  Transmission Date: 20200409
  Serious: Yes (Hospitalization)
  Sender: FDA-Public Use
  Company Number: US-PFIZER INC-2020016513

PATIENT
  Age: 68 Year
  Sex: Male
  Weight: 74.83 kg

DRUGS (5)
  1. MYLANTA [Concomitant]
     Active Substance: ALUMINUM HYDROXIDE\DIMETHICONE\MAGNESIUM HYDROXIDE
     Dosage: UNK
  2. FLECTOR [Suspect]
     Active Substance: DICLOFENAC EPOLAMINE
     Indication: NECK PAIN
     Dosage: 1 DF, 1X/DAY (1 PATCH NIGHTLY)
  3. PROTONIX [OMEPRAZOLE] [Concomitant]
     Active Substance: OMEPRAZOLE
     Dosage: UNK
  4. FLECTOR [Suspect]
     Active Substance: DICLOFENAC EPOLAMINE
     Dosage: UNK UNK, 1X/DAY
     Route: 062
     Dates: start: 20191228, end: 20200127
  5. FLECTOR [Suspect]
     Active Substance: DICLOFENAC EPOLAMINE
     Indication: MYALGIA
     Dosage: 1 DF, 1X/DAY (APPLY ONE PATCH TOPICALLY ONCE A DAY; AT NIGHT)
     Route: 062
     Dates: start: 20191227

REACTIONS (8)
  - Intentional product misuse [Unknown]
  - Tremor [Not Recovered/Not Resolved]
  - Dyspepsia [Recovered/Resolved]
  - Gastrooesophageal reflux disease [Unknown]
  - Anxiety [Not Recovered/Not Resolved]
  - Nausea [Recovered/Resolved]
  - Abdominal pain [Unknown]
  - Abdominal discomfort [Unknown]

NARRATIVE: CASE EVENT DATE: 201804
